FAERS Safety Report 8431137-8 (Version None)
Quarter: 2012Q2

REPORT INFORMATION
  Report Type: 
  Country: None (occurrence: None)
  Receive Date: 20120612
  Receipt Date: 20120605
  Transmission Date: 20120825
  Serious: Yes (Disabling, Other)
  Sender: FDA-Public Use
  Company Number: US-MERCK-1201USA03451

PATIENT
  Age: 62 Year
  Sex: Female
  Weight: 56 kg

DRUGS (3)
  1. FOSAMAX [Suspect]
     Route: 048
     Dates: start: 20030101, end: 20100601
  2. FOSAMAX [Suspect]
     Route: 048
     Dates: start: 20080301
  3. FOSAMAX [Suspect]
     Indication: OSTEOPOROSIS
     Route: 048
     Dates: start: 19950101, end: 20030101

REACTIONS (35)
  - ARTERIOSCLEROSIS [None]
  - OSTEOPENIA [None]
  - CAROTID ARTERY STENOSIS [None]
  - SINUS DISORDER [None]
  - ARTERIAL BRUIT [None]
  - CORONARY ARTERY DISEASE [None]
  - VASCULAR STENOSIS [None]
  - TRANSAMINASES INCREASED [None]
  - CARDIAC MURMUR [None]
  - OSTEOMYELITIS [None]
  - ACTINOMYCES TEST POSITIVE [None]
  - CARDIAC DISORDER [None]
  - DRUG INTOLERANCE [None]
  - SPINAL FRACTURE [None]
  - TOOTH ABSCESS [None]
  - SCOLIOSIS [None]
  - NASAL SEPTUM DEVIATION [None]
  - OSTEONECROSIS OF JAW [None]
  - CHRONIC SINUSITIS [None]
  - COUGH [None]
  - HYPERCHOLESTEROLAEMIA [None]
  - KYPHOSIS [None]
  - MOUTH HAEMORRHAGE [None]
  - ACUTE MYOCARDIAL INFARCTION [None]
  - CAROTID ARTERY DISEASE [None]
  - DENTAL CARIES [None]
  - EMPYEMA [None]
  - HYPOTENSION [None]
  - BLADDER CANCER [None]
  - ATRIOVENTRICULAR BLOCK SECOND DEGREE [None]
  - SINUSITIS [None]
  - PERIPHERAL VASCULAR DISORDER [None]
  - BLADDER PROLAPSE [None]
  - CHRONIC OBSTRUCTIVE PULMONARY DISEASE [None]
  - ORAL CAVITY FISTULA [None]
